FAERS Safety Report 9815367 (Version 1)
Quarter: 2014Q1

REPORT INFORMATION
  Report Type: Spontaneous
  Country: TR (occurrence: TR)
  Receive Date: 20140114
  Receipt Date: 20140114
  Transmission Date: 20141002
  Serious: Yes (Hospitalization)
  Sender: FDA-Public Use
  Company Number: TR-BAYER-2014-000974

PATIENT
  Sex: Male
  Weight: 62 kg

DRUGS (2)
  1. CORASPIN [Suspect]
     Indication: CORONARY ARTERY DISEASE
     Dosage: 100 MG, QD
  2. PLAVIX [Suspect]
     Dosage: 12.5 MG, QD

REACTIONS (1)
  - Cardiac pacemaker insertion [None]
